FAERS Safety Report 6023621-1 (Version None)
Quarter: 2008Q4

REPORT INFORMATION
  Report Type: 
  Country: None (occurrence: None)
  Receive Date: 20081230
  Receipt Date: 20081215
  Transmission Date: 20090506
  Serious: Yes (Other)
  Sender: FDA-Public Use
  Company Number: US-GENENTECH-274145

PATIENT
  Age: 62 Year
  Sex: Female

DRUGS (10)
  1. AVASTIN [Suspect]
     Indication: BREAST CANCER
     Dosage: 10 MG/KG, Q2W
  2. CAPECITABINE [Suspect]
     Indication: BREAST CANCER
  3. ABRAXANE [Suspect]
     Indication: BREAST CANCER
     Dosage: 80 MG/M2, 1/WEEK
  4. RANITIDINE [Concomitant]
     Indication: DRUG USE FOR UNKNOWN INDICATION
  5. OMEPRAZOLE [Concomitant]
     Indication: DRUG USE FOR UNKNOWN INDICATION
  6. DOXAZOSIN MESYLATE [Concomitant]
     Indication: DRUG USE FOR UNKNOWN INDICATION
  7. LOVENOX [Concomitant]
     Indication: DRUG USE FOR UNKNOWN INDICATION
  8. WARFARIN [Concomitant]
     Indication: DRUG USE FOR UNKNOWN INDICATION
  9. LOW MOLECULAR WEIGHT HEPARINS [Concomitant]
     Indication: DRUG USE FOR UNKNOWN INDICATION
  10. FONDAPARINUX SODIUM [Concomitant]
     Indication: DRUG USE FOR UNKNOWN INDICATION

REACTIONS (2)
  - DISEASE PROGRESSION [None]
  - LIVER INJURY [None]
